FAERS Safety Report 14186669 (Version 5)
Quarter: 2019Q2

REPORT INFORMATION
  Report Type: Spontaneous
  Country: US (occurrence: US)
  Receive Date: 20171114
  Receipt Date: 20190521
  Transmission Date: 20190711
  Serious: Yes (Death, Hospitalization, Other)
  Sender: FDA-Public Use
  Company Number: US-ASTRAZENECA-2017SF13042

PATIENT
  Age: 25706 Day
  Sex: Male
  Weight: 95.3 kg

DRUGS (60)
  1. NEXIUM [Suspect]
     Active Substance: ESOMEPRAZOLE MAGNESIUM
     Indication: GASTROOESOPHAGEAL REFLUX DISEASE
     Route: 048
     Dates: start: 20140619, end: 20150616
  2. NEXIUM [Suspect]
     Active Substance: ESOMEPRAZOLE MAGNESIUM
     Indication: GASTRIC ULCER
     Route: 048
  3. NEXIUM 24HR [Suspect]
     Active Substance: ESOMEPRAZOLE MAGNESIUM
     Indication: GASTROOESOPHAGEAL REFLUX DISEASE
     Route: 048
  4. NEXIUM 24HR [Suspect]
     Active Substance: ESOMEPRAZOLE MAGNESIUM
     Indication: GASTRIC ULCER
     Route: 048
  5. PRILOSEC [Suspect]
     Active Substance: OMEPRAZOLE MAGNESIUM
     Indication: GASTRIC ULCER
     Route: 048
     Dates: start: 20120326
  6. PRILOSEC OTC [Suspect]
     Active Substance: OMEPRAZOLE MAGNESIUM
     Indication: GASTRIC ULCER
     Route: 048
     Dates: start: 2016
  7. PREVACID 24 HR [Suspect]
     Active Substance: LANSOPRAZOLE
     Indication: GASTROOESOPHAGEAL REFLUX DISEASE
     Route: 065
     Dates: start: 2014
  8. CARVEDILOL. [Concomitant]
     Active Substance: CARVEDILOL
     Indication: PROSTATIC DISORDER
  9. TAMSULOSIN [Concomitant]
     Active Substance: TAMSULOSIN
     Indication: PROSTATIC DISORDER
  10. VLORIC [Concomitant]
     Indication: GOUT
  11. ZOCOR [Concomitant]
     Active Substance: SIMVASTATIN
  12. NEXIUM [Suspect]
     Active Substance: ESOMEPRAZOLE MAGNESIUM
     Indication: GASTROOESOPHAGEAL REFLUX DISEASE
     Route: 048
     Dates: start: 20120326, end: 2015
  13. NEXIUM [Suspect]
     Active Substance: ESOMEPRAZOLE MAGNESIUM
     Indication: GASTROOESOPHAGEAL REFLUX DISEASE
     Route: 048
  14. PREVACID [Suspect]
     Active Substance: LANSOPRAZOLE
     Indication: GASTRIC ULCER
     Route: 065
     Dates: start: 2014
  15. CLONIDINE. [Concomitant]
     Active Substance: CLONIDINE
     Indication: BLOOD PRESSURE ABNORMAL
     Route: 048
  16. LISINOPRIL. [Concomitant]
     Active Substance: LISINOPRIL
     Indication: CARDIAC DISORDER
  17. NAPROXEN. [Concomitant]
     Active Substance: NAPROXEN
     Indication: PERIPHERAL SWELLING
     Dosage: ONCE EVERY 9 MONTHS
  18. CITALOPRAM HYDROBROMIDE. [Concomitant]
     Active Substance: CITALOPRAM HYDROBROMIDE
  19. DILTIAZEM. [Concomitant]
     Active Substance: DILTIAZEM
  20. OXYCOD/ACETAMIN [Concomitant]
     Dosage: PRN 10 DAYS
     Route: 065
     Dates: start: 2015, end: 2016
  21. FUROSEMIDE. [Concomitant]
     Active Substance: FUROSEMIDE
     Route: 048
  22. DELTASONE [Concomitant]
     Active Substance: PREDNISONE
  23. NEXIUM [Suspect]
     Active Substance: ESOMEPRAZOLE MAGNESIUM
     Indication: GASTRIC ULCER
     Route: 048
  24. PRILOSEC [Suspect]
     Active Substance: OMEPRAZOLE MAGNESIUM
     Indication: GASTROOESOPHAGEAL REFLUX DISEASE
     Route: 048
     Dates: start: 20120326
  25. CLONIDINE. [Concomitant]
     Active Substance: CLONIDINE
     Indication: BLOOD PRESSURE ABNORMAL
     Route: 048
  26. SIMVASTATIN. [Concomitant]
     Active Substance: SIMVASTATIN
     Indication: BLOOD CHOLESTEROL ABNORMAL
  27. BETAPACE [Concomitant]
     Active Substance: SOTALOL HYDROCHLORIDE
  28. PREDNISONE. [Concomitant]
     Active Substance: PREDNISONE
  29. ZEMPLAR [Concomitant]
     Active Substance: PARICALCITOL
  30. GLIMEPIRIDE. [Concomitant]
     Active Substance: GLIMEPIRIDE
  31. TAMSULOSIN [Concomitant]
     Active Substance: TAMSULOSIN
  32. WARFARIN SODIUM. [Concomitant]
     Active Substance: WARFARIN SODIUM
     Route: 065
  33. WARFARIN SODIUM. [Concomitant]
     Active Substance: WARFARIN SODIUM
     Route: 065
  34. ATORVASTATIN [Concomitant]
     Active Substance: ATORVASTATIN
     Dosage: 20.0MG UNKNOWN
     Route: 048
  35. PRILOSEC OTC [Suspect]
     Active Substance: OMEPRAZOLE MAGNESIUM
     Indication: GASTRIC ULCER
     Route: 048
     Dates: start: 20120326
  36. IBUPROFEN. [Concomitant]
     Active Substance: IBUPROFEN
     Indication: HEADACHE
     Dosage: ONCE EVERY 6 MONTHS
  37. ALLOPURINOL. [Concomitant]
     Active Substance: ALLOPURINOL
     Route: 048
  38. SIMVASTATIN. [Concomitant]
     Active Substance: SIMVASTATIN
  39. WARFARIN [Concomitant]
     Active Substance: WARFARIN
  40. CIALIS [Concomitant]
     Active Substance: TADALAFIL
  41. CLONIDINE HYDROCHLORIDE. [Concomitant]
     Active Substance: CLONIDINE HYDROCHLORIDE
  42. DILTIAZEM HYDROCHLORIDE. [Concomitant]
     Active Substance: DILTIAZEM HYDROCHLORIDE
  43. PREDNISONE. [Concomitant]
     Active Substance: PREDNISONE
     Indication: INFLAMMATION
     Route: 065
     Dates: start: 2015, end: 2016
  44. NEXIUM [Suspect]
     Active Substance: ESOMEPRAZOLE MAGNESIUM
     Indication: GASTRIC ULCER
     Route: 048
     Dates: start: 20120326, end: 2015
  45. PRILOSEC OTC [Suspect]
     Active Substance: OMEPRAZOLE MAGNESIUM
     Indication: GASTROOESOPHAGEAL REFLUX DISEASE
     Route: 048
     Dates: start: 2016
  46. PREVACID [Suspect]
     Active Substance: LANSOPRAZOLE
     Indication: GASTROOESOPHAGEAL REFLUX DISEASE
     Route: 065
     Dates: start: 2014
  47. PREVACID 24 HR [Suspect]
     Active Substance: LANSOPRAZOLE
     Indication: GASTRIC ULCER
     Route: 065
     Dates: start: 2014
  48. PREDNISONE. [Concomitant]
     Active Substance: PREDNISONE
     Indication: INFLAMMATION
  49. ALLOPURINOL. [Concomitant]
     Active Substance: ALLOPURINOL
     Route: 065
  50. FLEXERIL [Concomitant]
     Active Substance: CYCLOBENZAPRINE HYDROCHLORIDE
  51. DEXILANT [Concomitant]
     Active Substance: DEXLANSOPRAZOLE
     Dosage: 60.0MG UNKNOWN
     Route: 065
  52. NEXIUM [Suspect]
     Active Substance: ESOMEPRAZOLE MAGNESIUM
     Indication: GASTRIC ULCER
     Route: 048
     Dates: start: 20140619, end: 20150616
  53. NEXIUM [Suspect]
     Active Substance: ESOMEPRAZOLE MAGNESIUM
     Indication: GASTROOESOPHAGEAL REFLUX DISEASE
     Route: 048
  54. PRILOSEC OTC [Suspect]
     Active Substance: OMEPRAZOLE MAGNESIUM
     Indication: GASTROOESOPHAGEAL REFLUX DISEASE
     Route: 048
     Dates: start: 20120326
  55. CLONIDINE. [Concomitant]
     Active Substance: CLONIDINE
     Indication: BLOOD PRESSURE ABNORMAL
     Route: 048
  56. AMARYL [Concomitant]
     Active Substance: GLIMEPIRIDE
  57. FERREX [Concomitant]
     Active Substance: FERRIC POLYSACCHARIDE COMPLEX
  58. SENSIPAR [Concomitant]
     Active Substance: CINACALCET HYDROCHLORIDE
  59. ACETAMNOPHEN/W HYDROCODAINE [Concomitant]
     Indication: PAIN
     Dates: start: 2012, end: 2015
  60. OXYCOD/ACETAMIN [Concomitant]
     Dosage: PRN 10 DAYS
     Route: 065
     Dates: start: 2015, end: 2016

REACTIONS (8)
  - Renal failure [Unknown]
  - End stage renal disease [Unknown]
  - Renal impairment [Unknown]
  - Cardiovascular disorder [Fatal]
  - Chronic kidney disease [Fatal]
  - Nephrogenic anaemia [Unknown]
  - Acute kidney injury [Unknown]
  - Hyperparathyroidism secondary [Unknown]

NARRATIVE: CASE EVENT DATE: 20120326
